FAERS Safety Report 4512842-2 (Version None)
Quarter: 2004Q4

REPORT INFORMATION
  Report Type: 
  Country: None (occurrence: None)
  Receive Date: 20041119
  Receipt Date: 20041119
  Transmission Date: 20050328
  Serious: No
  Sender: FDA-Public Use
  Company Number: None

PATIENT
  Sex: Female
  Weight: 74.8435 kg

DRUGS (2)
  1. LISINOPRIL [Suspect]
     Indication: HYPERTENSION
     Dosage: DAILY
     Dates: start: 20040825, end: 20041007
  2. LISINOPRIL [Suspect]
     Dosage: DAILY
     Dates: start: 20041008, end: 20041020

REACTIONS (1)
  - INCREASED TENDENCY TO BRUISE [None]
